FAERS Safety Report 22069205 (Version 1)
Quarter: 2023Q1

REPORT INFORMATION
  Report Type: Spontaneous
  Country: US (occurrence: None)
  Receive Date: 20230306
  Receipt Date: 20230306
  Transmission Date: 20230417
  Serious: Yes (Life-Threatening, Hospitalization, Disabling)
  Sender: FDA-Public Use
  Company Number: None

PATIENT
  Age: 44 Year
  Sex: Female
  Weight: 57.6 kg

DRUGS (3)
  1. PEMBROLIZUMAB [Suspect]
     Active Substance: PEMBROLIZUMAB
     Indication: Triple negative breast cancer
     Dosage: OTHER FREQUENCY : EVERY THREE WEEKS;?
     Route: 042
     Dates: start: 20211207, end: 20220118
  2. LEVOTHYROXINE [Concomitant]
     Active Substance: LEVOTHYROXINE
  3. BioZorb [Concomitant]

REACTIONS (12)
  - Liver injury [None]
  - Normocytic anaemia [None]
  - Hyperthyroidism [None]
  - Rash [None]
  - Pruritus [None]
  - Pruritus [None]
  - Nausea [None]
  - Vomiting [None]
  - Neutropenia [None]
  - Pyrexia [None]
  - Hypothyroidism [None]
  - Adverse drug reaction [None]

NARRATIVE: CASE EVENT DATE: 20220125
